FAERS Safety Report 9778736 (Version 2)
Quarter: 2013Q4

REPORT INFORMATION
  Report Type: Spontaneous
  Country: US (occurrence: US)
  Receive Date: 20131223
  Receipt Date: 20131223
  Transmission Date: 20140711
  Serious: Yes (Other)
  Sender: FDA-Public Use
  Company Number: US-BMSGILMSD-2010-0028488

PATIENT
  Sex: Male

DRUGS (1)
  1. ATRIPLA [Suspect]
     Indication: HIV INFECTION
     Dates: start: 20090623

REACTIONS (7)
  - Suicidal ideation [Unknown]
  - Palpitations [Unknown]
  - Weight decreased [Unknown]
  - Tinnitus [Recovering/Resolving]
  - Abnormal dreams [Unknown]
  - Sleep disorder [Unknown]
  - Anxiety [Unknown]
